FAERS Safety Report 15618705 (Version 2)
Quarter: 2018Q4

REPORT INFORMATION
  Report Type: Report from Study
  Country: US (occurrence: US)
  Receive Date: 20181114
  Receipt Date: 20181119
  Transmission Date: 20190205
  Serious: No
  Sender: FDA-Public Use
  Company Number: US-ACTELION-A-NJ2018-171660

PATIENT
  Age: 55 Year
  Sex: Female

DRUGS (17)
  1. SSD [Concomitant]
     Active Substance: SILVER SULFADIAZINE
  2. TRACLEER [Suspect]
     Active Substance: BOSENTAN
     Indication: PULMONARY ARTERIAL HYPERTENSION
     Dosage: 62.5 MG, BID
     Route: 048
     Dates: start: 20171229
  3. CITRACAL [Concomitant]
     Active Substance: CALCIUM CITRATE
     Dosage: UNK
     Dates: start: 20180213
  4. ADCIRCA [Concomitant]
     Active Substance: TADALAFIL
  5. RESTASIS [Concomitant]
     Active Substance: CYCLOSPORINE
  6. LOTEMAX [Concomitant]
     Active Substance: LOTEPREDNOL ETABONATE
  7. TRIAMCINOLONE [Concomitant]
     Active Substance: TRIAMCINOLONE
  8. CILOSTAZOL. [Concomitant]
     Active Substance: CILOSTAZOL
     Dosage: 100 MG, UNK
     Dates: start: 20180213
  9. ERYTHROMYCIN. [Concomitant]
     Active Substance: ERYTHROMYCIN
  10. INTEGRA F [Concomitant]
     Active Substance: ASCORBIC ACID\FERROUS ASPARTO GLYCINATE\FERROUS FUMARATE\FOLIC ACID\NIACIN
     Dosage: UNK
     Dates: start: 20170621
  11. MYCOPHENOLATE [Concomitant]
     Active Substance: MYCOPHENOLIC ACID
  12. BETAMETH [Concomitant]
  13. PREDNISONE. [Concomitant]
     Active Substance: PREDNISONE
     Dosage: 5 MG, UNK
     Dates: start: 20171019
  14. PLAQUENIL [Concomitant]
     Active Substance: HYDROXYCHLOROQUINE SULFATE
     Dosage: 200 MG, UNK
     Dates: start: 20180213
  15. PANTOPRAZOLE [Concomitant]
     Active Substance: PANTOPRAZOLE
     Dosage: 40 MG, UNK
     Dates: start: 20180213
  16. NIFEDIPINE. [Concomitant]
     Active Substance: NIFEDIPINE
  17. HYDROXYCHLOROQUINE [Concomitant]
     Active Substance: HYDROXYCHLOROQUINE
     Dosage: 200 MG, UNK
     Dates: start: 20170816

REACTIONS (4)
  - Somnolence [Recovered/Resolved]
  - Product dose omission [Unknown]
  - Memory impairment [Not Recovered/Not Resolved]
  - Dyspepsia [Unknown]

NARRATIVE: CASE EVENT DATE: 20180731
